FAERS Safety Report 18603931 (Version 1)
Quarter: 2020Q4

REPORT INFORMATION
  Report Type: Spontaneous
  Country: JP (occurrence: JP)
  Receive Date: 20201211
  Receipt Date: 20201211
  Transmission Date: 20210114
  Serious: Yes (Death, Hospitalization, Other)
  Sender: FDA-Public Use
  Company Number: JP-BRISTOL-MYERS SQUIBB COMPANY-BMS-2016-109696

PATIENT
  Age: 64 Year
  Sex: Male

DRUGS (1)
  1. OPDIVO [Suspect]
     Active Substance: NIVOLUMAB
     Indication: NON-SMALL CELL LUNG CANCER
     Dosage: 200 MG, UNK
     Route: 041
     Dates: start: 20161028, end: 20161028

REACTIONS (7)
  - Cough [Not Recovered/Not Resolved]
  - General physical health deterioration [Fatal]
  - Prescribed underdose [Unknown]
  - Malignant neoplasm progression [Fatal]
  - Rhinorrhoea [Not Recovered/Not Resolved]
  - Pulmonary tumour thrombotic microangiopathy [Fatal]
  - Decreased appetite [Unknown]

NARRATIVE: CASE EVENT DATE: 20161030
